FAERS Safety Report 18391344 (Version 5)
Quarter: 2020Q4

REPORT INFORMATION
  Report Type: Report from Study
  Country: CO (occurrence: CO)
  Receive Date: 20201016
  Receipt Date: 20201030
  Transmission Date: 20210114
  Serious: Yes (Death, Hospitalization)
  Sender: FDA-Public Use
  Company Number: NVSC2020CO278847

PATIENT
  Age: 42 Year
  Sex: Male

DRUGS (1)
  1. JADENU [Suspect]
     Active Substance: DEFERASIROX
     Indication: HAEMOSIDEROSIS
     Dosage: 360 MG, QD
     Route: 048

REACTIONS (10)
  - Blood sodium increased [Unknown]
  - Dyspnoea [Unknown]
  - Fluid retention [Unknown]
  - Product dose omission issue [Unknown]
  - Leukaemia recurrent [Unknown]
  - Asthenia [Unknown]
  - Leukaemia [Unknown]
  - Shock [Unknown]
  - Death [Fatal]
  - Pyrexia [Unknown]

NARRATIVE: CASE EVENT DATE: 20200930
